FAERS Safety Report 6124312-9 (Version None)
Quarter: 2009Q1

REPORT INFORMATION
  Report Type: 
  Country: None (occurrence: None)
  Receive Date: 20090319
  Receipt Date: 20090305
  Transmission Date: 20090719
  Serious: Yes (Hospitalization)
  Sender: FDA-Public Use
  Company Number: SE-ASTRAZENECA-2009SE01152

PATIENT
  Age: 499 Month
  Sex: Female

DRUGS (5)
  1. ATENOLOL [Suspect]
     Route: 048
  2. SOMATROPIN [Suspect]
     Indication: HYPOPITUITARISM
     Route: 058
     Dates: start: 20021204
  3. CLOZAPINE [Suspect]
  4. CITALOPRAM HYDROBROMIDE [Suspect]
  5. EGAZIL DURETTER [Suspect]

REACTIONS (2)
  - ACCIDENTAL EXPOSURE [None]
  - LOSS OF CONSCIOUSNESS [None]
